FAERS Safety Report 15574639 (Version 1)
Quarter: 2018Q4

REPORT INFORMATION
  Report Type: Spontaneous
  Country: SE (occurrence: SE)
  Receive Date: 20181101
  Receipt Date: 20181101
  Transmission Date: 20190205
  Serious: Yes (Other)
  Sender: FDA-Public Use
  Company Number: SE-TEVA-2018-SE-971887

PATIENT
  Sex: Female

DRUGS (1)
  1. AMILOFERM [Suspect]
     Active Substance: AMILORIDE HYDROCHLORIDE\HYDROCHLOROTHIAZIDE
     Route: 048

REACTIONS (2)
  - Hyponatraemia [Unknown]
  - Loss of consciousness [Unknown]
